FAERS Safety Report 7080822-1 (Version None)
Quarter: 2010Q4

REPORT INFORMATION
  Report Type: 
  Country: None (occurrence: None)
  Receive Date: 20101103
  Receipt Date: 20101101
  Transmission Date: 20110411
  Serious: Yes (Hospitalization)
  Sender: FDA-Public Use
  Company Number: DE-SANOFI-AVENTIS-2010SA066231

PATIENT
  Age: 89 Year
  Sex: Female
  Weight: 56 kg

DRUGS (1)
  1. DRONEDARONE HCL [Suspect]
     Indication: VENTRICULAR FIBRILLATION
     Route: 048
     Dates: start: 20100730, end: 20100813

REACTIONS (2)
  - BEDRIDDEN [None]
  - CONFUSIONAL STATE [None]
